FAERS Safety Report 10261508 (Version 2)
Quarter: 2014Q2

REPORT INFORMATION
  Report Type: Spontaneous
  Country: US (occurrence: US)
  Receive Date: 20140626
  Receipt Date: 20140626
  Transmission Date: 20141212
  Serious: No
  Sender: FDA-Public Use
  Company Number: US-MYLANLABS-2013S1016014

PATIENT
  Sex: Female

DRUGS (2)
  1. PERFOROMIST (FORMOTEROL FUMARATE) INHALATION SOLUTION [Suspect]
     Indication: CHRONIC OBSTRUCTIVE PULMONARY DISEASE
     Route: 055
     Dates: start: 2010
  2. IPRATROPIUM BROMIDE AND ALBUTEROL SULFATE INHALATION SOLUTION [Concomitant]
     Indication: CHRONIC OBSTRUCTIVE PULMONARY DISEASE
     Dosage: TAKEN FOR YEARS

REACTIONS (2)
  - Drug effect decreased [Not Recovered/Not Resolved]
  - Chronic obstructive pulmonary disease [Not Recovered/Not Resolved]
